FAERS Safety Report 25592377 (Version 1)
Quarter: 2025Q3

REPORT INFORMATION
  Report Type: Report from Study
  Country: US (occurrence: US)
  Receive Date: 20250722
  Receipt Date: 20250722
  Transmission Date: 20251020
  Serious: Yes (Hospitalization, Other)
  Sender: MYLAN
  Company Number: US-MYLANLABS-2025M1060644

PATIENT
  Age: 81 Year
  Sex: Female

DRUGS (4)
  1. CELEBREX [Suspect]
     Active Substance: CELECOXIB
     Indication: Product used for unknown indication
  2. GILOTRIF [Suspect]
     Active Substance: AFATINIB
     Indication: Non-small cell lung cancer
     Dosage: 30 MILLIGRAM, QD (1 IN 1 DAY)
     Dates: start: 20250226
  3. GILOTRIF [Suspect]
     Active Substance: AFATINIB
     Indication: Non-small cell lung cancer
     Dosage: 20 MILLIGRAM, QD (1 IN 1 DAY)
  4. METOPROLOL [Concomitant]
     Active Substance: METOPROLOL

REACTIONS (10)
  - Intestinal perforation [Not Recovered/Not Resolved]
  - Femur fracture [Unknown]
  - Fall [Not Recovered/Not Resolved]
  - Hip fracture [Not Recovered/Not Resolved]
  - Diarrhoea [Not Recovered/Not Resolved]
  - Gastrointestinal haemorrhage [Unknown]
  - Eye haemorrhage [Not Recovered/Not Resolved]
  - Blood electrolytes decreased [Not Recovered/Not Resolved]
  - Skin disorder [Not Recovered/Not Resolved]
  - Nail disorder [Not Recovered/Not Resolved]

NARRATIVE: CASE EVENT DATE: 20250301
